FAERS Safety Report 23772775 (Version 1)
Quarter: 2024Q2

REPORT INFORMATION
  Report Type: Spontaneous
  Country: US (occurrence: US)
  Receive Date: 20240423
  Receipt Date: 20240423
  Transmission Date: 20240716
  Serious: Yes (Other)
  Sender: FDA-Public Use
  Company Number: US-BAUSCHBL-2024BNL003904

PATIENT
  Sex: Female

DRUGS (1)
  1. VYZULTA [Suspect]
     Active Substance: LATANOPROSTENE BUNOD
     Indication: Product used for unknown indication
     Route: 065

REACTIONS (8)
  - Glaucoma [Unknown]
  - Eye pruritus [Unknown]
  - Eye discharge [Unknown]
  - Product use issue [Unknown]
  - Product packaging quantity issue [Unknown]
  - Insurance issue [Unknown]
  - Intentional product use issue [Unknown]
  - Expired product administered [Unknown]
